FAERS Safety Report 6921649-8 (Version None)
Quarter: 2010Q3

REPORT INFORMATION
  Report Type: 
  Country: None (occurrence: None)
  Receive Date: 20100812
  Receipt Date: 20100727
  Transmission Date: 20110219
  Serious: Yes (Hospitalization, Other)
  Sender: FDA-Public Use
  Company Number: US-ELI_LILLY_AND_COMPANY-US201002003754

PATIENT
  Sex: Male
  Weight: 83.9 kg

DRUGS (4)
  1. BYETTA [Suspect]
     Dosage: UNK, UNKNOWN
     Route: 065
     Dates: start: 20060701, end: 20071001
  2. ANTIHYPERTENSIVES [Concomitant]
  3. LIPITOR [Concomitant]
     Indication: BLOOD CHOLESTEROL INCREASED
     Dosage: UNK, DAILY (1/D)
  4. ATENOLOL [Concomitant]
     Indication: BLOOD PRESSURE INCREASED

REACTIONS (6)
  - ABDOMINAL ABSCESS [None]
  - CHOLELITHIASIS [None]
  - INFECTION [None]
  - LARGE INTESTINE PERFORATION [None]
  - PANCREATITIS ACUTE [None]
  - PANCREATITIS CHRONIC [None]
